FAERS Safety Report 9751899 (Version 2)
Quarter: 2014Q1

REPORT INFORMATION
  Report Type: Spontaneous
  Country: IT (occurrence: IT)
  Receive Date: 20131213
  Receipt Date: 20140203
  Transmission Date: 20141002
  Serious: Yes (Hospitalization)
  Sender: FDA-Public Use
  Company Number: IT-BRISTOL-MYERS SQUIBB COMPANY-19878925

PATIENT
  Age: 36 Year
  Sex: Male

DRUGS (2)
  1. KENACORT INJ 40 MG/ML [Suspect]
     Dosage: 1DF=40 MG/ML INJ SOL?1-UNIT/TOTAL
     Route: 008
     Dates: start: 20131111
  2. LIDOCAINE HCL [Suspect]
     Dosage: 1DF=1-UNIT/TOTAL
     Route: 008
     Dates: start: 20131111

REACTIONS (3)
  - CSF pressure decreased [Recovering/Resolving]
  - Headache [Recovering/Resolving]
  - Paraesthesia [Recovering/Resolving]
